FAERS Safety Report 12604542 (Version 1)
Quarter: 2016Q3

REPORT INFORMATION
  Report Type: Spontaneous
  Country: US (occurrence: US)
  Receive Date: 20160728
  Receipt Date: 20160728
  Transmission Date: 20161109
  Serious: No
  Sender: FDA-Public Use
  Company Number: US-ENDO PHARMACEUTICALS INC.-2016-004525

PATIENT
  Age: 56 Year
  Sex: Female
  Weight: 90.8 kg

DRUGS (2)
  1. BELBUCA [Suspect]
     Active Substance: BUPRENORPHINE HYDROCHLORIDE
     Indication: PAIN
     Route: 002
     Dates: start: 20160629, end: 20160630
  2. BELBUCA [Suspect]
     Active Substance: BUPRENORPHINE HYDROCHLORIDE
     Route: 002
     Dates: start: 20160630, end: 20160710

REACTIONS (6)
  - Motion sickness [Recovered/Resolved]
  - Dyspnoea [Recovered/Resolved]
  - Withdrawal syndrome [Recovered/Resolved]
  - Hyperaesthesia [Recovered/Resolved]
  - Drug ineffective [Recovered/Resolved]
  - Somnolence [Recovered/Resolved]

NARRATIVE: CASE EVENT DATE: 20160629
